FAERS Safety Report 9381363 (Version 1)
Quarter: 2013Q3

REPORT INFORMATION
  Report Type: Spontaneous
  Country: US (occurrence: US)
  Receive Date: 20130703
  Receipt Date: 20130703
  Transmission Date: 20140515
  Serious: No
  Sender: FDA-Public Use
  Company Number: US-MYLANLABS-2013S1008457

PATIENT
  Age: 75 Year
  Sex: Female
  Weight: 56.7 kg

DRUGS (2)
  1. IBANDRONATE SODIUM TABLETS [Suspect]
     Indication: OSTEOPOROSIS
     Route: 048
  2. METOPROLOL [Concomitant]
     Indication: BLOOD PRESSURE INCREASED
     Route: 048

REACTIONS (2)
  - Myalgia [Not Recovered/Not Resolved]
  - Arthralgia [Not Recovered/Not Resolved]
